FAERS Safety Report 18952902 (Version 4)
Quarter: 2022Q1

REPORT INFORMATION
  Report Type: Report from Study
  Country: CR (occurrence: CR)
  Receive Date: 20210301
  Receipt Date: 20220126
  Transmission Date: 20220423
  Serious: Yes (Other)
  Sender: FDA-Public Use
  Company Number: NVSC2021CR040733

PATIENT
  Sex: Male

DRUGS (2)
  1. SECUKINUMAB [Suspect]
     Active Substance: SECUKINUMAB
     Indication: Psoriasis
     Dosage: 150 MG, QMO (BENEATH THE SKIN, USUALLY VIA INJECTION)
     Route: 058
     Dates: start: 20201120
  2. SECUKINUMAB [Suspect]
     Active Substance: SECUKINUMAB
     Indication: Ankylosing spondylitis

REACTIONS (24)
  - Infarction [Recovered/Resolved]
  - General physical health deterioration [Unknown]
  - Cerebral disorder [Unknown]
  - Visual impairment [Unknown]
  - Renal impairment [Recovering/Resolving]
  - Hypersensitivity [Unknown]
  - Pain [Not Recovered/Not Resolved]
  - Burning sensation [Unknown]
  - Renal disorder [Unknown]
  - Scratch [Unknown]
  - Pruritus [Recovered/Resolved]
  - Influenza [Unknown]
  - Inflammation [Recovering/Resolving]
  - Feeling abnormal [Recovering/Resolving]
  - Blood uric acid abnormal [Unknown]
  - Limb injury [Recovering/Resolving]
  - Renal disorder [Recovered/Resolved]
  - Muscle disorder [Unknown]
  - Gait inability [Recovered/Resolved]
  - Arthralgia [Recovering/Resolving]
  - Back pain [Recovering/Resolving]
  - Psoriasis [Recovering/Resolving]
  - Therapeutic product effect incomplete [Unknown]
  - Inappropriate schedule of product administration [Recovering/Resolving]

NARRATIVE: CASE EVENT DATE: 20220115
